FAERS Safety Report 14289528 (Version 2)
Quarter: 2017Q4

REPORT INFORMATION
  Report Type: Report from Study
  Country: US (occurrence: US)
  Receive Date: 20171214
  Receipt Date: 20171222
  Transmission Date: 20180321
  Serious: Yes (Death)
  Sender: FDA-Public Use
  Company Number: US-ACTELION-A-US2017-163849

PATIENT
  Age: 80 Year
  Sex: Female

DRUGS (17)
  1. FUROSEMIDE. [Concomitant]
     Active Substance: FUROSEMIDE
  2. OPSUMIT [Suspect]
     Active Substance: MACITENTAN
     Indication: PULMONARY HYPERTENSION
     Dosage: 10 MG, UNK
     Route: 048
  3. PROAIR HFA [Concomitant]
     Active Substance: ALBUTEROL SULFATE
  4. AZITHROMYCIN ANHYDROUS. [Concomitant]
     Active Substance: AZITHROMYCIN ANHYDROUS
  5. NITROFURANTOIN MONOHYDRATE [Concomitant]
     Active Substance: NITROFURANTOIN MONOHYDRATE
  6. METOLAZONE. [Concomitant]
     Active Substance: METOLAZONE
  7. IBUPROFEN. [Concomitant]
     Active Substance: IBUPROFEN
  8. RANEXA [Concomitant]
     Active Substance: RANOLAZINE
  9. ZOLOFT [Concomitant]
     Active Substance: SERTRALINE HYDROCHLORIDE
  10. WARFARIN SODIUM. [Concomitant]
     Active Substance: WARFARIN SODIUM
  11. HUMALOG [Concomitant]
     Active Substance: INSULIN LISPRO
  12. MULTAQ [Concomitant]
     Active Substance: DRONEDARONE
  13. ZYMAXID [Concomitant]
     Active Substance: GATIFLOXACIN
  14. DIOVAN [Concomitant]
     Active Substance: VALSARTAN
  15. ALPRAZOLAM. [Concomitant]
     Active Substance: ALPRAZOLAM
  16. CARVEDILOL. [Concomitant]
     Active Substance: CARVEDILOL
  17. LANTUS [Concomitant]
     Active Substance: INSULIN GLARGINE

REACTIONS (2)
  - Respiratory failure [Fatal]
  - Cardiac failure [Fatal]
